FAERS Safety Report 25894201 (Version 1)
Quarter: 2025Q4

REPORT INFORMATION
  Report Type: Spontaneous
  Country: US (occurrence: US)
  Receive Date: 20251008
  Receipt Date: 20251008
  Transmission Date: 20260117
  Serious: No
  Sender: ACADIA PHARMACEUTICALS
  Company Number: US-ACADIA PHARMACEUTICALS INC.-ACA-2025-TRF-010730

PATIENT
  Age: 9 Year
  Sex: Female

DRUGS (7)
  1. DAYBUE [Suspect]
     Active Substance: TROFINETIDE
     Indication: Rett syndrome
     Dosage: 2.5 MILLILITER
     Route: 065
     Dates: start: 20230401
  2. DAYBUE [Suspect]
     Active Substance: TROFINETIDE
     Dosage: 1 MILLILITER (BEFORE STOPPING)
     Route: 065
     Dates: end: 20231101
  3. ZYRTEC [Concomitant]
     Active Substance: CETIRIZINE HYDROCHLORIDE
  4. MELATONIN [Concomitant]
     Active Substance: MELATONIN
  5. CANNABIDIOL [Concomitant]
     Active Substance: CANNABIDIOL
  6. DELSYM [Concomitant]
     Active Substance: DEXTROMETHORPHAN
  7. CHOLINE [Concomitant]
     Active Substance: CHOLINE

REACTIONS (2)
  - Vomiting [Unknown]
  - Underdose [Unknown]
